FAERS Safety Report 9373620 (Version 3)
Quarter: 2013Q3

REPORT INFORMATION
  Report Type: Spontaneous
  Country: FR (occurrence: FR)
  Receive Date: 20130627
  Receipt Date: 20130912
  Transmission Date: 20140515
  Serious: Yes (Hospitalization)
  Sender: FDA-Public Use
  Company Number: FR-BAXTER-2013BAX023063

PATIENT
  Age: 90 Year
  Sex: Male

DRUGS (10)
  1. GLUCOSE 5% BIOPERF(EXPLOITANTAGUETTANT) SOLUTION POUR PERFUSION [Suspect]
     Indication: PRODUCT USED FOR UNKNOWN INDICATION
     Route: 058
     Dates: start: 20130412, end: 20130415
  2. GLUCOSE 5% BIOPERF(EXPLOITANTAGUETTANT) SOLUTION POUR PERFUSION [Suspect]
     Indication: OFF LABEL USE
  3. AUGMENTIN [Concomitant]
     Indication: PRODUCT USED FOR UNKNOWN INDICATION
     Route: 048
     Dates: start: 20130412, end: 20130423
  4. CONTRAMAL [Concomitant]
     Indication: PRODUCT USED FOR UNKNOWN INDICATION
     Route: 048
     Dates: start: 20130410, end: 20130412
  5. LEVOTHYROX [Concomitant]
     Indication: PRODUCT USED FOR UNKNOWN INDICATION
     Route: 048
     Dates: start: 20130204
  6. SERESTA [Concomitant]
     Indication: PRODUCT USED FOR UNKNOWN INDICATION
     Route: 048
     Dates: start: 20130204
  7. PREVISCAN [Concomitant]
     Indication: PRODUCT USED FOR UNKNOWN INDICATION
     Dosage: 1/2 DOSE
     Route: 048
     Dates: start: 20130204
  8. PREVISCAN [Concomitant]
     Dosage: 1/4 DOSE
     Route: 048
     Dates: start: 20130204
  9. XATRAL [Concomitant]
     Indication: PRODUCT USED FOR UNKNOWN INDICATION
     Route: 048
     Dates: start: 20130329
  10. LOXEN [Concomitant]
     Indication: PRODUCT USED FOR UNKNOWN INDICATION
     Route: 048
     Dates: start: 20130204

REACTIONS (6)
  - Incorrect route of drug administration [Unknown]
  - Papule [Recovered/Resolved]
  - Blister [Recovered/Resolved]
  - Hyperthermia [Recovered/Resolved]
  - Injection site erythema [Recovered/Resolved]
  - Injection site induration [Recovered/Resolved]
